FAERS Safety Report 10625495 (Version 1)
Quarter: 2014Q4

REPORT INFORMATION
  Report Type: Spontaneous
  Country: TR (occurrence: None)
  Receive Date: 20141201
  Receipt Date: 20141201
  Transmission Date: 20150529
  Serious: Yes (Congenital Anomaly)
  Sender: FDA-Public Use
  Company Number: 2643806

PATIENT
  Sex: Female

DRUGS (3)
  1. 5-FLUOROURACIL /00098801/ [Suspect]
     Active Substance: FLUOROURACIL
     Dosage: 1 WEEK
     Route: 064
  2. CALCIUM FOLINATE [Suspect]
     Active Substance: LEUCOVORIN CALCIUM
     Dosage: 1 WEEK
     Route: 064
  3. OXALIPLATIN. [Suspect]
     Active Substance: OXALIPLATIN
     Dosage: 1 WEEK
     Route: 064

REACTIONS (5)
  - Foetal growth restriction [None]
  - Caesarean section [None]
  - Small for dates baby [None]
  - Premature baby [None]
  - Maternal drugs affecting foetus [None]
